FAERS Safety Report 10133581 (Version 2)
Quarter: 2014Q2

REPORT INFORMATION
  Report Type: Spontaneous
  Country: US (occurrence: US)
  Receive Date: 20140428
  Receipt Date: 20140528
  Transmission Date: 20141212
  Serious: Yes (Other)
  Sender: FDA-Public Use
  Company Number: US-GILEAD-2014-0100459

PATIENT
  Sex: Female

DRUGS (1)
  1. LETAIRIS [Suspect]
     Indication: PRODUCT USED FOR UNKNOWN INDICATION
     Dosage: 5 MG, QD
     Route: 065
     Dates: start: 20140313, end: 20140314

REACTIONS (5)
  - Swollen tongue [Unknown]
  - Erythema [Recovering/Resolving]
  - Dysuria [Recovered/Resolved]
  - Gastrointestinal motility disorder [Recovered/Resolved]
  - Peripheral swelling [Recovering/Resolving]
